FAERS Safety Report 7945586-5 (Version None)
Quarter: 2011Q4

REPORT INFORMATION
  Report Type: 
  Country: None (occurrence: None)
  Receive Date: 20111125
  Receipt Date: 20111116
  Transmission Date: 20120403
  Serious: Yes (Hospitalization, Other)
  Sender: FDA-Public Use
  Company Number: WAES 1111BRA00056

PATIENT
  Age: 40 Year
  Sex: Female

DRUGS (4)
  1. ISENTRESS [Suspect]
     Indication: HIV INFECTION
  2. LAMIVUDINE(PEPFAR) [Concomitant]
  3. TENOFOVIR DISOPROXIL FUMARATE [Concomitant]
  4. RIFAMPIN [Concomitant]

REACTIONS (2)
  - FEBRILE NEUTROPENIA [None]
  - LEUKOPENIA [None]
